FAERS Safety Report 7460098-3 (Version None)
Quarter: 2011Q2

REPORT INFORMATION
  Report Type: 
  Country: None (occurrence: None)
  Receive Date: 20110505
  Receipt Date: 20110504
  Transmission Date: 20111010
  Serious: Yes (Death)
  Sender: FDA-Public Use
  Company Number: CN-PFIZER INC-2011089165

PATIENT
  Age: 47 Year
  Sex: Male

DRUGS (1)
  1. SUTENT [Suspect]
     Indication: RENAL CELL CARCINOMA
     Dosage: 2 CAPSULES, ONCE DAILY
     Route: 048
     Dates: start: 20100901

REACTIONS (2)
  - MULTI-ORGAN FAILURE [None]
  - RENAL FAILURE [None]
